FAERS Safety Report 6752707-9 (Version None)
Quarter: 2010Q2

REPORT INFORMATION
  Report Type: 
  Country: None (occurrence: None)
  Receive Date: 20100528
  Receipt Date: 20100519
  Transmission Date: 20101027
  Serious: No
  Sender: FDA-Public Use
  Company Number: 20107960

PATIENT
  Age: 61 Year
  Sex: Female

DRUGS (1)
  1. LIORESAL [Suspect]
     Indication: MUSCLE SPASTICITY
     Dosage: 799.5 MCG, DAILY, INTRATHECAL
     Route: 037

REACTIONS (1)
  - DRUG EFFECT DECREASED [None]
